FAERS Safety Report 15696359 (Version 1)
Quarter: 2018Q4

REPORT INFORMATION
  Report Type: Other
  Country: CA (occurrence: CA)
  Receive Date: 20181206
  Receipt Date: 20181206
  Transmission Date: 20190205
  Serious: Yes (Hospitalization)
  Sender: FDA-Public Use
  Company Number: CA-HLSUS-2018-CA-001415

PATIENT
  Age: 62 Year
  Sex: Female

DRUGS (1)
  1. CLOZARIL [Suspect]
     Active Substance: CLOZAPINE
     Route: 048
     Dates: start: 20180809, end: 20180928

REACTIONS (6)
  - Leukocytosis [Unknown]
  - Leukopenia [Recovered/Resolved]
  - Cellulitis [Unknown]
  - Neutropenia [Recovered/Resolved]
  - Pyrexia [None]
  - Neutrophilia [Unknown]

NARRATIVE: CASE EVENT DATE: 20180924
